FAERS Safety Report 5143026-5 (Version None)
Quarter: 2006Q4

REPORT INFORMATION
  Report Type: 
  Country: None (occurrence: None)
  Receive Date: 20061103
  Receipt Date: 20061025
  Transmission Date: 20070319
  Serious: Yes (Other)
  Sender: FDA-Public Use
  Company Number: US-JNJFOC-20060906800

PATIENT
  Sex: Female
  Weight: 90.72 kg

DRUGS (6)
  1. REMICADE [Suspect]
     Route: 042
  2. REMICADE [Suspect]
     Route: 042
  3. REMICADE [Suspect]
     Route: 042
  4. REMICADE [Suspect]
     Indication: RHEUMATOID ARTHRITIS
     Route: 042
  5. MOBIC [Concomitant]
  6. METHOTREXATE [Concomitant]

REACTIONS (3)
  - CARDIAC DISORDER [None]
  - HEART RATE IRREGULAR [None]
  - RESPIRATORY DISORDER [None]
